FAERS Safety Report 8608880-0 (Version None)
Quarter: 2012Q3

REPORT INFORMATION
  Report Type: 
  Country: None (occurrence: None)
  Receive Date: 20120821
  Receipt Date: 20120806
  Transmission Date: 20120928
  Serious: Yes (Death, Other)
  Sender: FDA-Public Use
  Company Number: US-ROCHE-625978

PATIENT

DRUGS (2)
  1. AVASTIN [Suspect]
     Indication: BREAST CANCER METASTATIC
     Dosage: EVERY 2 WEEKS
     Route: 042
  2. LAPATINIB [Suspect]
     Indication: BREAST CANCER METASTATIC
     Route: 048

REACTIONS (11)
  - DIARRHOEA [None]
  - GASTROINTESTINAL HAEMORRHAGE [None]
  - ASPARTATE AMINOTRANSFERASE INCREASED [None]
  - BREAST CANCER METASTATIC [None]
  - HYPERBILIRUBINAEMIA [None]
  - HYPERTENSION [None]
  - EJECTION FRACTION DECREASED [None]
  - RASH [None]
  - GASTRITIS [None]
  - ANAEMIA [None]
  - ALANINE AMINOTRANSFERASE INCREASED [None]
